FAERS Safety Report 4586754-2 (Version None)
Quarter: 2005Q1

REPORT INFORMATION
  Report Type: 
  Country: None (occurrence: None)
  Receive Date: 20050214
  Receipt Date: 20050203
  Transmission Date: 20050727
  Serious: Yes (Other)
  Sender: FDA-Public Use
  Company Number: 200510506BCC

PATIENT
  Age: 81 Year
  Sex: Female
  Weight: 52.1637 kg

DRUGS (3)
  1. ALEVE [Suspect]
     Indication: PAIN MANAGEMENT
     Dosage: 220 MG, QD, ORAL
     Route: 048
     Dates: start: 20050130, end: 20050201
  2. TRIPLEFLEX [Concomitant]
  3. VITAMIN B COMPLEX CAP [Concomitant]

REACTIONS (2)
  - BLOOD PRESSURE INCREASED [None]
  - NAUSEA [None]
